FAERS Safety Report 22044223 (Version 1)
Quarter: 2023Q1

REPORT INFORMATION
  Report Type: Spontaneous
  Country: US (occurrence: US)
  Receive Date: 20230228
  Receipt Date: 20230228
  Transmission Date: 20230418
  Serious: No
  Sender: FDA-Public Use
  Company Number: US-ABBVIE-4295592

PATIENT
  Sex: Male

DRUGS (1)
  1. HUMIRA [Suspect]
     Active Substance: ADALIMUMAB
     Indication: Inflammation
     Dosage: 40 MILLIGRAM
     Route: 058

REACTIONS (3)
  - Off label use [Unknown]
  - Nervousness [Unknown]
  - Injection site haemorrhage [Unknown]
